FAERS Safety Report 7310906-1 (Version None)
Quarter: 2011Q1

REPORT INFORMATION
  Report Type: 
  Country: None (occurrence: None)
  Receive Date: 20110224
  Receipt Date: 20110131
  Transmission Date: 20110831
  Serious: No
  Sender: FDA-Public Use
  Company Number: US-B.I. PHARMACEUTICALS,INC./RIDGEFIELD-2011-BP-03157BP

PATIENT
  Sex: Female

DRUGS (7)
  1. ATENOLOL [Concomitant]
     Indication: HYPERTENSION
     Dosage: 100 MG
     Route: 048
  2. PREDNISONE [Concomitant]
     Indication: ARTERITIS
     Dosage: 5 MG
     Route: 048
     Dates: start: 20100701
  3. CARDURA [Concomitant]
     Indication: HYPERTENSION
     Dosage: 1 MG
     Route: 048
  4. INDERAL [Concomitant]
     Indication: ATRIAL FIBRILLATION
     Dosage: 60 MG
     Route: 048
  5. PRADAXA [Suspect]
     Indication: ATRIAL FIBRILLATION
     Dosage: 300 MG
     Route: 048
     Dates: start: 20110118, end: 20110124
  6. PRADAXA [Suspect]
     Dosage: 150 MG
     Route: 048
     Dates: start: 20110129
  7. ALDACTONE [Concomitant]
     Indication: FLUID RETENTION
     Dosage: 50 MG
     Route: 048

REACTIONS (1)
  - CATARACT [None]
